FAERS Safety Report 8455669-1 (Version None)
Quarter: 2012Q2

REPORT INFORMATION
  Report Type: 
  Country: None (occurrence: None)
  Receive Date: 20120621
  Receipt Date: 20120615
  Transmission Date: 20120825
  Serious: Yes (Hospitalization)
  Sender: FDA-Public Use
  Company Number: US-GILEAD-2012-0053331

PATIENT
  Sex: Female

DRUGS (8)
  1. GEODON [Suspect]
  2. EFFEXOR [Suspect]
  3. LITHIUM [Suspect]
  4. CELEXA [Suspect]
  5. XANAX [Suspect]
  6. VICODIN [Suspect]
  7. LETAIRIS [Suspect]
     Indication: PULMONARY HYPERTENSION
     Dosage: 10 MG, UNK
     Route: 048
     Dates: start: 20100730
  8. SEROQUEL [Suspect]

REACTIONS (1)
  - SYNCOPE [None]
